FAERS Safety Report 7195922-5 (Version None)
Quarter: 2010Q4

REPORT INFORMATION
  Report Type: 
  Country: None (occurrence: None)
  Receive Date: 20101223
  Receipt Date: 20101011
  Transmission Date: 20110411
  Serious: No
  Sender: FDA-Public Use
  Company Number: US-AMGEN-KDL443632

PATIENT

DRUGS (5)
  1. ENBREL [Suspect]
     Indication: PSORIASIS
     Dosage: 50 MG, QWK
     Route: 058
     Dates: start: 20100921
  2. ENBREL [Suspect]
     Indication: PSORIATIC ARTHROPATHY
  3. LEVOTHYROXINE SODIUM [Concomitant]
     Dosage: UNK UNK, UNK
     Route: 048
  4. CALCITRIOL [Concomitant]
     Dosage: UNK UNK, UNK
     Route: 048
  5. CELECOXIB [Concomitant]
     Dosage: UNK UNK, UNK
     Route: 048

REACTIONS (5)
  - INJECTION SITE REACTION [None]
  - INJECTION SITE RECALL REACTION [None]
  - RASH [None]
  - RASH ERYTHEMATOUS [None]
  - RASH PRURITIC [None]
